FAERS Safety Report 6357183-6 (Version None)
Quarter: 2009Q3

REPORT INFORMATION
  Report Type: 
  Country: None (occurrence: None)
  Receive Date: 20090911
  Receipt Date: 20090901
  Transmission Date: 20100115
  Serious: Yes (Other)
  Sender: FDA-Public Use
  Company Number: 232443K08USA

PATIENT
  Age: 46 Year
  Sex: Female

DRUGS (3)
  1. REBIF [Suspect]
     Indication: MULTIPLE SCLEROSIS
     Dosage: 44 MCG, 3 IN 1 WEEKS, SUBCUTANEOUS
     Route: 058
     Dates: start: 20050113, end: 20080101
  2. REBIF [Suspect]
     Indication: MULTIPLE SCLEROSIS
     Dosage: 44 MCG, 3 IN 1 WEEKS, SUBCUTANEOUS
     Route: 058
     Dates: start: 20081226, end: 20081201
  3. FLU SHOT (INFLUENZA VIRUS VACCINE POLYVALENT) [Concomitant]

REACTIONS (9)
  - ABDOMINAL DISTENSION [None]
  - CONDITION AGGRAVATED [None]
  - CROHN'S DISEASE [None]
  - INFLUENZA [None]
  - INJECTION SITE ERYTHEMA [None]
  - INJECTION SITE PAIN [None]
  - INJECTION SITE WARMTH [None]
  - MIGRAINE [None]
  - RASH ERYTHEMATOUS [None]
